FAERS Safety Report 16878439 (Version 2)
Quarter: 2019Q4

REPORT INFORMATION
  Report Type: Report from Study
  Country: US (occurrence: US)
  Receive Date: 20191002
  Receipt Date: 20191031
  Transmission Date: 20200122
  Serious: Yes (Other)
  Sender: FDA-Public Use
  Company Number: US-BAYER-2019-176725

PATIENT
  Age: 65 Year
  Sex: Male
  Weight: 79.3 kg

DRUGS (1)
  1. COPANLISIB. [Suspect]
     Active Substance: COPANLISIB
     Indication: OROPHARYNGEAL CANCER
     Dosage: 60 MG ON DAYS 1, 8 AND 15
     Route: 042
     Dates: start: 20190513, end: 20190624

REACTIONS (3)
  - Soft tissue necrosis [None]
  - Soft tissue infection [None]
  - Skin ulcer [None]

NARRATIVE: CASE EVENT DATE: 20190703
